FAERS Safety Report 4429541-8 (Version None)
Quarter: 2004Q3

REPORT INFORMATION
  Report Type: 
  Country: None (occurrence: None)
  Receive Date: 20040819
  Receipt Date: 20040813
  Transmission Date: 20050211
  Serious: Yes (Other)
  Sender: FDA-Public Use
  Company Number: 12662326

PATIENT
  Age: 40 Year
  Sex: Male

DRUGS (9)
  1. COMBIVIR [Suspect]
     Indication: HIV INFECTION
     Dosage: 2TAB PER DAY
     Route: 048
     Dates: start: 20020210
  2. EFAVIRENZ [Suspect]
     Indication: HIV INFECTION
     Dosage: 600MG PER DAY
     Route: 048
     Dates: start: 20030202
  3. NIASPAN [Concomitant]
  4. EFFEXOR [Concomitant]
  5. ALLEGRA-D [Concomitant]
  6. FLONASE [Concomitant]
  7. MULTI-VITAMINS [Concomitant]
  8. REMERON [Concomitant]
  9. NEURONTIN [Concomitant]

REACTIONS (1)
  - LIPIDS INCREASED [None]
